FAERS Safety Report 6334377-7 (Version None)
Quarter: 2009Q3

REPORT INFORMATION
  Report Type: 
  Country: None (occurrence: None)
  Receive Date: 20090831
  Receipt Date: 20090821
  Transmission Date: 20100115
  Serious: Yes (Hospitalization)
  Sender: FDA-Public Use
  Company Number: US-BIOGENIDEC-2009BI014197

PATIENT
  Age: 67 Year
  Sex: Female

DRUGS (2)
  1. AVONEX [Suspect]
     Indication: MULTIPLE SCLEROSIS
     Route: 030
     Dates: start: 20070219, end: 20080301
  2. AVONEX [Suspect]
     Route: 030

REACTIONS (3)
  - ABDOMINAL PAIN UPPER [None]
  - COLON CANCER [None]
  - OOPHORECTOMY BILATERAL [None]
